FAERS Safety Report 22980304 (Version 3)
Quarter: 2023Q4

REPORT INFORMATION
  Report Type: Spontaneous
  Country: JP (occurrence: JP)
  Receive Date: 20230925
  Receipt Date: 20231117
  Transmission Date: 20240110
  Serious: Yes (Death, Other)
  Sender: FDA-Public Use
  Company Number: JP-BAYER-2023A132976

PATIENT
  Age: 61 Year
  Sex: Male

DRUGS (1)
  1. IOPAMIDOL [Suspect]
     Active Substance: IOPAMIDOL
     Dosage: UNK
     Dates: start: 2023, end: 2023

REACTIONS (1)
  - Stevens-Johnson syndrome [Fatal]

NARRATIVE: CASE EVENT DATE: 20230101
